FAERS Safety Report 4318708-5 (Version None)
Quarter: 2004Q1

REPORT INFORMATION
  Report Type: 
  Country: None (occurrence: None)
  Receive Date: 20040316
  Receipt Date: 20040316
  Transmission Date: 20041129
  Serious: Yes (Other)
  Sender: FDA-Public Use
  Company Number: None

PATIENT

DRUGS (4)
  1. XOLAIR [Suspect]
     Indication: ASTHMA
     Dosage: 375 MG SC Q 2 WEEKS
     Route: 058
     Dates: start: 20030930, end: 20040215
  2. ALBUTEROL [Concomitant]
  3. ADRIAR DISKUS [Concomitant]
  4. SINGULAIR [Concomitant]

REACTIONS (1)
  - ALOPECIA [None]
